FAERS Safety Report 5415987-8 (Version None)
Quarter: 2007Q3

REPORT INFORMATION
  Report Type: 
  Country: None (occurrence: None)
  Receive Date: 20070713
  Receipt Date: 20070403
  Transmission Date: 20080115
  Serious: Yes (Hospitalization, Other)
  Sender: FDA-Public Use
  Company Number: US-JNJFOC-20060903186

PATIENT
  Age: 25 Year
  Sex: Female
  Weight: 87.9978 kg

DRUGS (5)
  1. ORTHO EVRA [Suspect]
     Indication: CONTRACEPTION
     Dosage: 1 IN 7 DAY, TRANSDERMAL
     Route: 062
     Dates: end: 20030101
  2. VOLTAREN [Concomitant]
  3. SKELAXIN [Concomitant]
  4. CORTISONE (CORTISONE) INJECTION [Concomitant]
  5. STOOL SOFTNERS (DOCUSATE SODIUM) [Concomitant]

REACTIONS (1)
  - DEEP VEIN THROMBOSIS [None]
